FAERS Safety Report 6347414-0 (Version None)
Quarter: 2009Q3

REPORT INFORMATION
  Report Type: 
  Country: None (occurrence: None)
  Receive Date: 20090910
  Receipt Date: 20090908
  Transmission Date: 20100115
  Serious: Yes (Death, Hospitalization)
  Sender: FDA-Public Use
  Company Number: ES-ASTRAZENECA-2009SE11816

PATIENT
  Age: 19 Year
  Sex: Female

DRUGS (3)
  1. QUETIAPINE [Suspect]
  2. TOPIRAMATE [Suspect]
  3. VENLAFAXINE [Suspect]

REACTIONS (2)
  - CONVULSION [None]
  - MULTIPLE DRUG OVERDOSE [None]
